FAERS Safety Report 5242510-3 (Version None)
Quarter: 2007Q1

REPORT INFORMATION
  Report Type: 
  Country: None (occurrence: None)
  Receive Date: 20070214
  Receipt Date: 20070131
  Transmission Date: 20070707
  Serious: Yes (Other)
  Sender: FDA-Public Use
  Company Number: 007142

PATIENT
  Sex: Female
  Weight: 3.4 kg

DRUGS (4)
  1. FLUOXETINE [Suspect]
     Indication: DEPRESSION
     Dosage: 50 MG, QD, INTRA-UTERINE
     Route: 015
     Dates: start: 20060301, end: 20061020
  2. WELLBUTRIN [Suspect]
     Dosage: 200 MG, BID, INTRA-UTERINE
     Route: 015
     Dates: start: 20050101
  3. VALTREX [Concomitant]
  4. MULTIVITAMIN [Concomitant]

REACTIONS (4)
  - CAESAREAN SECTION [None]
  - DRUG EXPOSURE DURING PREGNANCY [None]
  - GASTROOESOPHAGEAL REFLUX DISEASE [None]
  - NEONATAL DISORDER [None]
